FAERS Safety Report 18895674 (Version 1)
Quarter: 2021Q1

REPORT INFORMATION
  Report Type: Spontaneous
  Country: ES (occurrence: ES)
  Receive Date: 20210216
  Receipt Date: 20210216
  Transmission Date: 20210420
  Serious: Yes (Other)
  Sender: FDA-Public Use
  Company Number: ES-AUROBINDO-AUR-APL-2021-005832

PATIENT
  Age: 48 Year
  Sex: Male
  Weight: 76 kg

DRUGS (9)
  1. SERTRALINE [Suspect]
     Active Substance: SERTRALINE HYDROCHLORIDE
     Indication: PRODUCT USED FOR UNKNOWN INDICATION
     Dosage: 50 MILLIGRAM
     Route: 065
     Dates: start: 20201210
  2. MIRTAZAPINE. [Concomitant]
     Active Substance: MIRTAZAPINE
     Indication: PRODUCT USED FOR UNKNOWN INDICATION
     Dosage: 15 MILLIGRAM
     Route: 065
     Dates: start: 20201222
  3. RIVOTRIL [Concomitant]
     Active Substance: CLONAZEPAM
     Indication: PRODUCT USED FOR UNKNOWN INDICATION
     Dosage: UNK (DROPS (5?5?8)
     Route: 065
     Dates: start: 20201222
  4. SILODOSIN. [Concomitant]
     Active Substance: SILODOSIN
     Indication: BENIGN PROSTATIC HYPERPLASIA
     Dosage: 8 MILLIGRAM, ONCE A DAY
     Route: 065
     Dates: start: 20200730
  5. SERTRALINE [Suspect]
     Active Substance: SERTRALINE HYDROCHLORIDE
     Dosage: 150 MILLIGRAM
     Route: 065
     Dates: start: 20210111, end: 20210119
  6. PRISTIQ EXTENDED?RELEASE [Suspect]
     Active Substance: DESVENLAFAXINE SUCCINATE
     Dosage: 200 MILLIGRAM, ONCE A DAY
     Route: 048
     Dates: start: 20201126, end: 20201210
  7. DEPRAX [Concomitant]
     Indication: INSOMNIA
     Dosage: 100 MILLIGRAM, ONCE A DAY (BEFORE BEDTIME)
     Route: 065
     Dates: start: 20201105, end: 20201222
  8. SERTRALINE [Suspect]
     Active Substance: SERTRALINE HYDROCHLORIDE
     Dosage: 100 MILLIGRAM
     Route: 065
     Dates: start: 20201222
  9. PRISTIQ EXTENDED?RELEASE [Suspect]
     Active Substance: DESVENLAFAXINE SUCCINATE
     Indication: MAJOR DEPRESSION
     Dosage: 50 MILLIGRAM, ONCE A DAY (50 MG EVERY 24 HOURS AT BREAKFAST)
     Route: 048
     Dates: start: 20201105, end: 202011

REACTIONS (3)
  - Dysuria [Recovered/Resolved with Sequelae]
  - Genital pain [Recovered/Resolved with Sequelae]
  - Condition aggravated [Recovering/Resolving]

NARRATIVE: CASE EVENT DATE: 20201126
